FAERS Safety Report 15491163 (Version 1)
Quarter: 2018Q4

REPORT INFORMATION
  Report Type: Spontaneous
  Country: GB (occurrence: GB)
  Receive Date: 20181012
  Receipt Date: 20181012
  Transmission Date: 20190205
  Serious: Yes (Other)
  Sender: FDA-Public Use
  Company Number: GB-TEVA-2018-GB-963464

PATIENT
  Age: 39 Year
  Sex: Female
  Weight: 78 kg

DRUGS (6)
  1. AMITRIPTYLINE HYDROCHLORIDE. [Concomitant]
     Active Substance: AMITRIPTYLINE HYDROCHLORIDE
     Dosage: 2 DOSAGE FORMS DAILY; NIGHT
     Route: 065
     Dates: start: 20171018
  2. VARENICLINE [Concomitant]
     Active Substance: VARENICLINE
     Dosage: 2 DOSAGE FORMS DAILY;
     Route: 065
     Dates: start: 20180905
  3. SUMATRIPTAN. [Concomitant]
     Active Substance: SUMATRIPTAN
     Dosage: 50MG TO 100MG AT ONSET OF ATTACK. IF THE PATIEN...
     Route: 065
     Dates: start: 20180606
  4. NITROFURANTOIN. [Suspect]
     Active Substance: NITROFURANTOIN
     Indication: URINARY TRACT INFECTION
     Route: 065
     Dates: start: 20180914
  5. TIMODINE [Concomitant]
     Dosage: 3 DOSAGE FORMS DAILY;
     Route: 065
     Dates: start: 20171018
  6. PREGABALIN. [Concomitant]
     Active Substance: PREGABALIN
     Dosage: 2 DOSAGE FORMS DAILY; IN THE MORNING AND AT NIGHT
     Route: 065
     Dates: start: 20180328

REACTIONS (2)
  - Rash generalised [Recovering/Resolving]
  - Peak expiratory flow rate decreased [Unknown]

NARRATIVE: CASE EVENT DATE: 201809
